FAERS Safety Report 4923398-4 (Version None)
Quarter: 2006Q1

REPORT INFORMATION
  Report Type: 
  Country: None (occurrence: None)
  Receive Date: 20060223
  Receipt Date: 20060223
  Transmission Date: 20060701
  Serious: No
  Sender: FDA-Public Use
  Company Number: None

PATIENT
  Age: 48 Year
  Sex: Male
  Weight: 126.1 kg

DRUGS (1)
  1. GUAIFENESIN SYRUP (RUGBY) [Suspect]
     Indication: COUGH
     Dosage: 10 ML QID PO
     Route: 048
     Dates: start: 20060210, end: 20060213

REACTIONS (3)
  - NAUSEA [None]
  - PHARMACEUTICAL PRODUCT COMPLAINT [None]
  - POOR QUALITY DRUG ADMINISTERED [None]
